FAERS Safety Report 8277380-2 (Version None)
Quarter: 2012Q2

REPORT INFORMATION
  Report Type: 
  Country: None (occurrence: None)
  Receive Date: 20120412
  Receipt Date: 20120330
  Transmission Date: 20120825
  Serious: Yes (Hospitalization)
  Sender: FDA-Public Use
  Company Number: JP-UCBSA-054548

PATIENT
  Age: 48 Year
  Sex: Female

DRUGS (5)
  1. CERTOLIZUMAB PEGOL [Suspect]
     Indication: RHEUMATOID ARTHRITIS
     Route: 058
     Dates: start: 20100120
  2. CERTOLIZUMAB PEGOL [Suspect]
     Dosage: 275-08-003: 400MG EVERY TWO WEEKS (0, 2 + 4) FOLLOWED BY 200 MG EVERY 2 WEEKS
     Route: 058
     Dates: start: 20090708
  3. CELECOXIB [Concomitant]
     Dosage: DAILY DOSE: 400 MG
     Dates: start: 20090601
  4. OMEPRAZOLE [Concomitant]
     Dosage: DAILY DOSE: 20 MG
     Dates: start: 20090601
  5. ALENDRONATE SODIUM [Concomitant]
     Dates: start: 20090223

REACTIONS (1)
  - OVARIAN NEOPLASM [None]
